FAERS Safety Report 19296233 (Version 1)
Quarter: 2021Q2

REPORT INFORMATION
  Report Type: Spontaneous
  Country: US (occurrence: US)
  Receive Date: 20210524
  Receipt Date: 20210524
  Transmission Date: 20210717
  Serious: Yes (Other)
  Sender: FDA-Public Use
  Company Number: US-PURDUE-USA-2020-0164989

PATIENT
  Weight: 149.66 kg

DRUGS (2)
  1. OXYCONTIN [Suspect]
     Active Substance: OXYCODONE HYDROCHLORIDE
     Indication: PRODUCT USED FOR UNKNOWN INDICATION
     Dosage: 80 MG, BID
     Route: 048
     Dates: start: 199907
  2. OXYCONTIN [Suspect]
     Active Substance: OXYCODONE HYDROCHLORIDE
     Dosage: 10 MG, TID
     Route: 048

REACTIONS (6)
  - Overweight [Unknown]
  - Drug dependence [Unknown]
  - Lethargy [Unknown]
  - Somnolence [Recovering/Resolving]
  - Pain [Recovering/Resolving]
  - Libido decreased [Recovering/Resolving]
